FAERS Safety Report 7720081-7 (Version None)
Quarter: 2011Q3

REPORT INFORMATION
  Report Type: 
  Country: None (occurrence: None)
  Receive Date: 20110824
  Receipt Date: 20110811
  Transmission Date: 20111222
  Serious: Yes (Hospitalization)
  Sender: FDA-Public Use
  Company Number: 2011PV000038

PATIENT
  Age: 65 Year
  Sex: Female
  Weight: 62 kg

DRUGS (14)
  1. BONDRONAT /01304701/ [Concomitant]
  2. DEPOCYT [Suspect]
     Indication: METASTASES TO MENINGES
     Dosage: 50 MG; 1X; INTH
     Route: 037
     Dates: start: 20110606
  3. TEMODAL [Concomitant]
  4. PANTOLOC /01263202/ [Concomitant]
  5. PEN-V [Concomitant]
  6. PROCHLORPERAZINE [Concomitant]
  7. KEPPRA [Concomitant]
  8. TRISIUM /00714701/ [Concomitant]
  9. CAL D VITA [Concomitant]
  10. MYCOSTATIN /00036501/ [Concomitant]
  11. BETAISODONA [Concomitant]
  12. FORTECORTIN /00016001/ [Concomitant]
  13. NOLVADEX /00388701/ [Concomitant]
  14. BANEOCIN /00321801/ [Concomitant]

REACTIONS (1)
  - INFECTED SKIN ULCER [None]
